FAERS Safety Report 20879909 (Version 1)
Quarter: 2022Q2

REPORT INFORMATION
  Report Type: Spontaneous
  Country: US (occurrence: US)
  Receive Date: 20220526
  Receipt Date: 20220526
  Transmission Date: 20220720
  Serious: No
  Sender: FDA-Public Use
  Company Number: US-MYLANLABS-2022M1035672

PATIENT
  Sex: Female
  Weight: 86.18 kg

DRUGS (1)
  1. CLONIDINE TRANSDERMAL SYSTEM [Suspect]
     Active Substance: CLONIDINE
     Indication: Blood pressure measurement
     Dosage: 0.3 MILLIGRAM, QD
     Route: 062

REACTIONS (2)
  - Application site erythema [Unknown]
  - Application site pruritus [Unknown]
